FAERS Safety Report 8506376-8 (Version None)
Quarter: 2012Q3

REPORT INFORMATION
  Report Type: 
  Country: None (occurrence: None)
  Receive Date: 20120706
  Receipt Date: 20120706
  Transmission Date: 20120928
  Serious: Yes (Hospitalization, Other)
  Sender: FDA-Public Use
  Company Number: None

PATIENT
  Sex: Female
  Weight: 63.05 kg

DRUGS (1)
  1. SEROQUEL [Suspect]
     Indication: BIPOLAR DISORDER
     Dosage: UNKNOWN QHS PO
     Route: 048
     Dates: start: 20080101

REACTIONS (3)
  - VOMITING [None]
  - PRODUCT SUBSTITUTION ISSUE [None]
  - HICCUPS [None]
